FAERS Safety Report 14140151 (Version 1)
Quarter: 2017Q4

REPORT INFORMATION
  Report Type: Spontaneous
  Country: GB (occurrence: GB)
  Receive Date: 20171030
  Receipt Date: 20171030
  Transmission Date: 20180321
  Serious: Yes (Other)
  Sender: FDA-Public Use
  Company Number: GB-ACCORD-060329

PATIENT
  Age: 72 Year
  Sex: Female
  Weight: 98 kg

DRUGS (10)
  1. CODEINE PHOSPHATE/PARACETAMOL [Concomitant]
     Dosage: 1-2 30 MG/500 MG CAPSULES UPTO 4 TIMES DAILY
     Dates: start: 20170719
  2. GLYCERYL TRINITRATE [Concomitant]
     Active Substance: NITROGLYCERIN
     Indication: ANGINA PECTORIS
     Dosage: 1-2 SPRAYS AS NEEDED UNDER THE TONGUE FOR ANGINA FOR PAIN
     Route: 060
     Dates: start: 20170724
  3. DIGOXIN. [Concomitant]
     Active Substance: DIGOXIN
     Dates: start: 20170719
  4. RAMIPRIL. [Concomitant]
     Active Substance: RAMIPRIL
     Dates: start: 20170719
  5. VOLTAROL [Concomitant]
     Active Substance: DICLOFENAC SODIUM
     Dosage: WHEN REQUIRED
     Dates: start: 20170719
  6. AMLODIPINE [Concomitant]
     Active Substance: AMLODIPINE BESYLATE
     Dates: start: 20170719
  7. BISOPROLOL [Concomitant]
     Active Substance: BISOPROLOL
     Dates: start: 20170719
  8. RIVAROXABAN [Concomitant]
     Active Substance: RIVAROXABAN
     Dates: start: 20170719
  9. PRAVASTATIN. [Suspect]
     Active Substance: PRAVASTATIN
     Indication: CONSTIPATION
     Route: 048
  10. BENDROFLUMETHIAZIDE [Concomitant]
     Active Substance: BENDROFLUMETHIAZIDE
     Dates: start: 20170719

REACTIONS (2)
  - Off label use [Unknown]
  - Gait inability [Recovered/Resolved]

NARRATIVE: CASE EVENT DATE: 20170724
